FAERS Safety Report 7562171-8 (Version None)
Quarter: 2011Q2

REPORT INFORMATION
  Report Type: 
  Country: None (occurrence: None)
  Receive Date: 20110614
  Receipt Date: 20110601
  Transmission Date: 20111010
  Serious: Yes (Hospitalization, Other)
  Sender: FDA-Public Use
  Company Number: 2011MA006651

PATIENT
  Age: 65 Year
  Sex: Female

DRUGS (5)
  1. SULFAMETHOXAZOLE [Concomitant]
  2. SERTRALINE HYDROCHLORIDE [Suspect]
     Indication: AFFECTIVE DISORDER
     Dosage: 50 MG;OD
  3. DOXYCYCLINE [Concomitant]
  4. TRIMETHOPRIM [Concomitant]
  5. LEVOFLOXACIN [Concomitant]

REACTIONS (4)
  - HEPATITIS [None]
  - CHOLESTASIS [None]
  - CONDITION AGGRAVATED [None]
  - CYTOLYTIC HEPATITIS [None]
